FAERS Safety Report 14353007 (Version 1)
Quarter: 2018Q1

REPORT INFORMATION
  Report Type: Spontaneous
  Country: AU (occurrence: AU)
  Receive Date: 20180104
  Receipt Date: 20180104
  Transmission Date: 20180509
  Serious: Yes (Life-Threatening)
  Sender: FDA-Public Use
  Company Number: AU-GLAXOSMITHKLINE-AU2017201705

PATIENT
  Age: 10 Year
  Sex: Male

DRUGS (8)
  1. OSELTAMIVIR [Suspect]
     Active Substance: OSELTAMIVIR
     Indication: SHOCK
     Dosage: UNK
     Route: 065
  2. LINCOMYCIN. [Suspect]
     Active Substance: LINCOMYCIN
     Indication: SHOCK
     Dosage: UNK
     Route: 065
  3. AZITHROMYCIN ANHYDROUS. [Suspect]
     Active Substance: AZITHROMYCIN ANHYDROUS
     Indication: SHOCK
     Dosage: UNK
     Route: 065
  4. SULFAMETHOXAZOLE + TRIMETHOPRIME [Suspect]
     Active Substance: SULFAMETHOXAZOLE\TRIMETHOPRIM
     Indication: BURKHOLDERIA PSEUDOMALLEI INFECTION
     Dosage: UNK
     Route: 065
  5. VANCOMYCIN [Suspect]
     Active Substance: VANCOMYCIN
     Indication: PRODUCT USED FOR UNKNOWN INDICATION
     Dosage: UNK
     Route: 065
  6. SULFAMETHOXAZOLE + TRIMETHOPRIME [Suspect]
     Active Substance: SULFAMETHOXAZOLE\TRIMETHOPRIM
     Indication: SHOCK
  7. PROSTACYCLIN [Suspect]
     Active Substance: EPOPROSTENOL
     Indication: PRODUCT USED FOR UNKNOWN INDICATION
     Dosage: UNK
     Route: 055
  8. MEROPENEM. [Suspect]
     Active Substance: MEROPENEM
     Indication: BURKHOLDERIA PSEUDOMALLEI INFECTION
     Dosage: UNK
     Route: 065

REACTIONS (1)
  - Drug ineffective [Unknown]
